FAERS Safety Report 8958218 (Version 1)
Quarter: 2012Q4

REPORT INFORMATION
  Report Type: 
  Country: US (occurrence: US)
  Receive Date: 20121211
  Receipt Date: 20121211
  Transmission Date: 20130627
  Serious: No
  Sender: FDA-Public Use
  Company Number: PHEH2012US023942

PATIENT
  Sex: Male

DRUGS (5)
  1. TASIGNA [Suspect]
  2. NORVASC [Concomitant]
  3. LEXAPRO [Concomitant]
  4. VYTORIN [Concomitant]
  5. LANTUS [Concomitant]

REACTIONS (2)
  - Eye disorder [Unknown]
  - Concomitant disease aggravated [Unknown]
